FAERS Safety Report 15267904 (Version 1)
Quarter: 2018Q3

REPORT INFORMATION
  Report Type: Spontaneous
  Country: US (occurrence: US)
  Receive Date: 20180725
  Receipt Date: 20180725
  Transmission Date: 20181010
  Serious: No
  Sender: FDA-Public Use
  Company Number: None

PATIENT
  Age: 69 Year
  Sex: Female

DRUGS (2)
  1. IBRANCE [Suspect]
     Active Substance: PALBOCICLIB
     Indication: BREAST CANCER
     Route: 048
     Dates: start: 20171113
  2. IBRANCE [Concomitant]
     Active Substance: PALBOCICLIB
     Dates: start: 20171113

REACTIONS (2)
  - Nausea [None]
  - Pruritus [None]

NARRATIVE: CASE EVENT DATE: 20180725
